FAERS Safety Report 4338310-9 (Version None)
Quarter: 2004Q2

REPORT INFORMATION
  Report Type: 
  Country: None (occurrence: None)
  Receive Date: 20040409
  Receipt Date: 20040401
  Transmission Date: 20050107
  Serious: Yes (Hospitalization)
  Sender: FDA-Public Use
  Company Number: FRWYE679101APR04

PATIENT
  Sex: Female

DRUGS (2)
  1. EFFEXOR [Suspect]
     Route: 048
     Dates: start: 20040101, end: 20040101
  2. METEOSPASMYL (ALVERINE CITRATE/DL-METHIONINE, , 0) [Suspect]
     Route: 048

REACTIONS (4)
  - GASTROINTESTINAL DISORDER [None]
  - HEPATIC FAILURE [None]
  - PYREXIA [None]
  - TOXIC SKIN ERUPTION [None]
